FAERS Safety Report 8128439-1 (Version None)
Quarter: 2012Q1

REPORT INFORMATION
  Report Type: 
  Country: None (occurrence: None)
  Receive Date: 20120210
  Receipt Date: 20120208
  Transmission Date: 20120608
  Serious: Yes (Life-Threatening, Other)
  Sender: FDA-Public Use
  Company Number: US-BAYER-2012-013177

PATIENT
  Age: 51 Year
  Sex: Female

DRUGS (3)
  1. AVELOX [Suspect]
     Dosage: 400 MG/IV
     Route: 042
     Dates: start: 20100315, end: 20100315
  2. FUROSEMIDE [Concomitant]
  3. PREMARIN [Concomitant]

REACTIONS (23)
  - POST-TRAUMATIC STRESS DISORDER [None]
  - SWELLING [None]
  - DECREASED APPETITE [None]
  - DYSURIA [None]
  - DENTAL OPERATION [None]
  - LOSS OF CONSCIOUSNESS [None]
  - UNEVALUABLE EVENT [None]
  - EMERGENCY CARE EXAMINATION [None]
  - PAIN [None]
  - FEELING ABNORMAL [None]
  - MUSCLE SPASMS [None]
  - CONTUSION [None]
  - SPEECH DISORDER [None]
  - COMMUNICATION DISORDER [None]
  - PHOTOPHOBIA [None]
  - ANAPHYLACTIC SHOCK [None]
  - PALPITATIONS [None]
  - HALLUCINATION [None]
  - ANXIETY [None]
  - TENDON RUPTURE [None]
  - MADAROSIS [None]
  - BURSITIS [None]
  - DEPRESSION [None]
